FAERS Safety Report 8852193 (Version 1)
Quarter: 2012Q4

REPORT INFORMATION
  Report Type: 
  Country: FR (occurrence: FR)
  Receive Date: 20121022
  Receipt Date: 20121022
  Transmission Date: 20130627
  Serious: Yes (Other)
  Sender: FDA-Public Use
  Company Number: FR-GENZYME-CLOF-1002357

PATIENT
  Age: 11 None
  Sex: Female

DRUGS (5)
  1. EVOLTRA [Suspect]
     Indication: ACUTE LYMPHOCYTIC LEUKAEMIA
     Dosage: UNK
     Route: 065
     Dates: start: 201206
  2. EVOLTRA [Suspect]
     Dosage: UNK
     Route: 065
     Dates: start: 201208
  3. EVOLTRA [Suspect]
     Dosage: UNK
     Route: 065
     Dates: start: 201209, end: 201209
  4. VANCOMYCIN [Suspect]
     Indication: PROPHYLAXIS
     Dosage: UNK
     Route: 065
  5. CHEMOTHERAPEUTICS NOS [Concomitant]
     Indication: ACUTE LYMPHOCYTIC LEUKAEMIA
     Dosage: UNK
     Route: 065

REACTIONS (7)
  - Febrile bone marrow aplasia [Unknown]
  - Face oedema [Recovered/Resolved]
  - Pleural effusion [Recovered/Resolved]
  - Oedema peripheral [Recovered/Resolved]
  - Transaminases increased [Unknown]
  - Blood bilirubin increased [Unknown]
  - Pericardial effusion [Recovered/Resolved]
